FAERS Safety Report 23805634 (Version 2)
Quarter: 2024Q2

REPORT INFORMATION
  Report Type: Spontaneous
  Country: PL (occurrence: PL)
  Receive Date: 20240502
  Receipt Date: 20240625
  Transmission Date: 20240716
  Serious: Yes (Other)
  Sender: FDA-Public Use
  Company Number: PL-AstraZeneca-2024-189565

PATIENT
  Sex: Male

DRUGS (1)
  1. SYNAGIS [Suspect]
     Active Substance: PALIVIZUMAB
     Indication: Drug screen
     Route: 030

REACTIONS (4)
  - Irritability [Unknown]
  - Tearfulness [Unknown]
  - Body temperature increased [Unknown]
  - Anxiety [Unknown]
